FAERS Safety Report 7993274-1 (Version None)
Quarter: 2011Q4

REPORT INFORMATION
  Report Type: 
  Country: None (occurrence: None)
  Receive Date: 20111219
  Receipt Date: 20110428
  Transmission Date: 20120403
  Serious: No
  Sender: FDA-Public Use
  Company Number: US-ASTRAZENECA-2011SE25412

PATIENT
  Age: 70 Year
  Sex: Female
  Weight: 57.6 kg

DRUGS (3)
  1. CRESTOR [Suspect]
     Indication: BLOOD CHOLESTEROL INCREASED
     Route: 048
     Dates: start: 20110421, end: 20110423
  2. GLAUCOMA DROPS [Concomitant]
  3. AVALIDE [Concomitant]

REACTIONS (4)
  - NIGHT SWEATS [None]
  - CONFUSIONAL STATE [None]
  - IRRITABILITY [None]
  - LACRIMATION INCREASED [None]
